FAERS Safety Report 15668995 (Version 1)
Quarter: 2018Q4

REPORT INFORMATION
  Report Type: Report from Study
  Country: None (occurrence: GB)
  Receive Date: 20181129
  Receipt Date: 20181129
  Transmission Date: 20190205
  Serious: Yes (Other)
  Sender: FDA-Public Use
  Company Number: GB-ABBVIE-18K-167-2498393-00

PATIENT
  Sex: Female

DRUGS (1)
  1. HUMIRA [Suspect]
     Active Substance: ADALIMUMAB
     Indication: PSORIATIC ARTHROPATHY
     Route: 058

REACTIONS (10)
  - Chest pain [Unknown]
  - Malaise [Unknown]
  - Procedural pneumothorax [Unknown]
  - Hyperhidrosis [Unknown]
  - Chest discomfort [Recovering/Resolving]
  - Cough [Unknown]
  - Surgery [Unknown]
  - Chills [Unknown]
  - Influenza like illness [Not Recovered/Not Resolved]
  - Nasopharyngitis [Unknown]
